FAERS Safety Report 13682539 (Version 2)
Quarter: 2017Q3

REPORT INFORMATION
  Report Type: Spontaneous
  Country: US (occurrence: US)
  Receive Date: 20170623
  Receipt Date: 20170720
  Transmission Date: 20171127
  Serious: Yes (Hospitalization, Other)
  Sender: FDA-Public Use
  Company Number: US-ACORDA-ACO_138819_2017

PATIENT
  Age: 63 Year
  Sex: Female
  Weight: 49.89 kg

DRUGS (16)
  1. PROTONIX [Suspect]
     Active Substance: PANTOPRAZOLE SODIUM
     Indication: PRODUCT USED FOR UNKNOWN INDICATION
     Dosage: 40 MG, BID
     Route: 065
     Dates: start: 2017, end: 201704
  2. LISINOPRIL. [Concomitant]
     Active Substance: LISINOPRIL
     Indication: BLOOD PRESSURE ABNORMAL
     Dosage: 40 MG, QD
     Route: 065
     Dates: start: 2009
  3. RESTORIL [Concomitant]
     Active Substance: TEMAZEPAM
     Indication: SLEEP DISORDER
     Dosage: 30 MG, QD
     Route: 065
  4. NITROGLYCERIN. [Concomitant]
     Active Substance: NITROGLYCERIN
     Indication: CHEST PAIN
     Dosage: 40 MG, PRN
     Route: 065
     Dates: start: 2009
  5. BUSPAR [Suspect]
     Active Substance: BUSPIRONE HYDROCHLORIDE
     Indication: PANIC ATTACK
     Dosage: 10 MG, BID
     Route: 065
     Dates: start: 201702, end: 201702
  6. BUSPAR [Suspect]
     Active Substance: BUSPIRONE HYDROCHLORIDE
     Indication: ANXIETY
  7. GABAPENTIN. [Suspect]
     Active Substance: GABAPENTIN
     Indication: OSTEOARTHRITIS
     Dosage: 400 MG, TID
     Route: 065
     Dates: end: 201701
  8. TETRACYCLINE [Suspect]
     Active Substance: TETRACYCLINE
     Indication: BACTERIAL COLITIS
     Dosage: 500 MG, TID
     Route: 065
     Dates: start: 20170331, end: 201704
  9. MELOXICAM. [Suspect]
     Active Substance: MELOXICAM
     Indication: ARTHRITIS
     Dosage: UNK
     Route: 065
     Dates: end: 201701
  10. ZOCOR [Concomitant]
     Active Substance: SIMVASTATIN
     Indication: BLOOD CHOLESTEROL
     Dosage: 40 MG, QD
     Route: 065
  11. LEXAPRO [Concomitant]
     Active Substance: ESCITALOPRAM OXALATE
     Indication: DEPRESSION
     Dosage: 20 MG, QD
     Route: 065
  12. ZANAFLEX [Suspect]
     Active Substance: TIZANIDINE HYDROCHLORIDE
     Indication: MUSCLE SPASMS
     Dosage: UNK
     Route: 065
     Dates: end: 201701
  13. FLAGYL [Suspect]
     Active Substance: METRONIDAZOLE\METRONIDAZOLE HYDROCHLORIDE
     Indication: BACTERIAL COLITIS
     Dosage: 500 MG, QID
     Route: 048
     Dates: start: 20170331, end: 201704
  14. FLUOXETINE [Suspect]
     Active Substance: FLUOXETINE HYDROCHLORIDE
     Indication: PANIC ATTACK
     Dosage: 40 MG, QD
     Route: 065
     Dates: start: 201702, end: 201702
  15. FENOFIBRATE. [Concomitant]
     Active Substance: FENOFIBRATE
     Indication: BLOOD CHOLESTEROL INCREASED
     Dosage: 134 MG, QD
     Route: 065
  16. NORVASC [Concomitant]
     Active Substance: AMLODIPINE BESYLATE
     Indication: HYPERTENSION
     Dosage: 5 MG, QD
     Route: 065

REACTIONS (23)
  - Blood magnesium decreased [Recovered/Resolved]
  - Blood creatinine increased [Unknown]
  - Condition aggravated [Unknown]
  - Depression [Unknown]
  - Pain [Recovered/Resolved]
  - Insomnia [Unknown]
  - Tremor [Recovered/Resolved]
  - Blood cholesterol increased [Unknown]
  - Vomiting [Recovered/Resolved]
  - Peptic ulcer haemorrhage [Recovered/Resolved]
  - Injury [Unknown]
  - Nerve injury [Unknown]
  - Panic attack [Unknown]
  - Hypertension [Unknown]
  - Chest pain [Unknown]
  - Nausea [Recovered/Resolved]
  - Pruritus [Recovering/Resolving]
  - Nightmare [Recovering/Resolving]
  - Gastritis bacterial [Unknown]
  - Miliaria [Recovered/Resolved]
  - Feeling hot [Recovered/Resolved]
  - Anxiety [Unknown]
  - Rash [Recovering/Resolving]

NARRATIVE: CASE EVENT DATE: 2017
